FAERS Safety Report 19212634 (Version 1)
Quarter: 2021Q2

REPORT INFORMATION
  Report Type: Spontaneous
  Country: AR (occurrence: AR)
  Receive Date: 20210504
  Receipt Date: 20210504
  Transmission Date: 20210717
  Serious: Yes (Other)
  Sender: FDA-Public Use
  Company Number: AR-PFIZER INC-2021448582

PATIENT
  Age: 74 Year
  Sex: Male

DRUGS (2)
  1. XELJANZ [Suspect]
     Active Substance: TOFACITINIB CITRATE
     Indication: RHEUMATOID ARTHRITIS
     Dosage: 5 MG, 2X/DAY
     Dates: start: 20180101
  2. SPUTNIK V [Concomitant]
     Dosage: SINGLE DOSE
     Dates: start: 202103, end: 202103

REACTIONS (1)
  - Coronary artery occlusion [Unknown]
